FAERS Safety Report 8016214-8 (Version None)
Quarter: 2011Q4

REPORT INFORMATION
  Report Type: 
  Country: None (occurrence: None)
  Receive Date: 20111227
  Receipt Date: 20111216
  Transmission Date: 20120403
  Serious: Yes (Hospitalization)
  Sender: FDA-Public Use
  Company Number: US-GDP-11412630

PATIENT
  Sex: Male
  Weight: 95.2554 kg

DRUGS (18)
  1. DOXYCYCLINE [Suspect]
     Indication: ROSACEA
     Dosage: (40 MG QD ORAL) (40 MGQD ORAL)
     Route: 048
     Dates: start: 20111122, end: 20111130
  2. DOXYCYCLINE [Suspect]
     Indication: ROSACEA
     Dosage: (40 MG QD ORAL) (40 MGQD ORAL)
     Route: 048
     Dates: start: 20111117, end: 20111121
  3. ASCORBIC ACID [Concomitant]
  4. VYTORIN [Concomitant]
  5. CALCIUM CITRATE [Concomitant]
  6. NITROGLYCERIN [Concomitant]
  7. MULTIVITAMIN /05992801/ [Concomitant]
  8. ASPIRIN [Concomitant]
  9. CURCUMA LONGA [Concomitant]
  10. ALTACE [Concomitant]
  11. METROGEL [Suspect]
     Indication: ROSACEA
     Dosage: (1 DF QD TOPICAL)
     Route: 061
     Dates: start: 20111117, end: 20111130
  12. COLECALCIFEROL [Concomitant]
  13. PLAVIX [Concomitant]
  14. LOVAZA [Concomitant]
  15. MAGNESIUM [Concomitant]
  16. TOCOPHEROL CONCENTRATE CAP [Concomitant]
  17. MSM [Concomitant]
  18. SAW PALMETTO [Concomitant]

REACTIONS (4)
  - PAIN IN EXTREMITY [None]
  - MUSCULOSKELETAL PAIN [None]
  - BACK PAIN [None]
  - ABASIA [None]
